FAERS Safety Report 5410958-X (Version None)
Quarter: 2007Q3

REPORT INFORMATION
  Report Type: 
  Country: None (occurrence: None)
  Receive Date: 20070810
  Receipt Date: 20070801
  Transmission Date: 20080115
  Serious: Yes (Other)
  Sender: FDA-Public Use
  Company Number: GB-ABBOTT-07P-167-0376412-00

PATIENT
  Age: 16 Year
  Sex: Male

DRUGS (6)
  1. VALPROATE SODIUM [Suspect]
     Indication: EPILEPSY
  2. CARBAMAZEPINE [Interacting]
     Indication: EPILEPSY
  3. RISPERIDONE [Interacting]
     Indication: AUTISM
  4. RISPERIDONE [Interacting]
     Indication: ABNORMAL BEHAVIOUR
  5. RISPERIDONE [Interacting]
  6. MELATONIN [Concomitant]
     Indication: SLEEP DISORDER
     Route: 065

REACTIONS (2)
  - DRUG INTERACTION [None]
  - OEDEMA PERIPHERAL [None]
